FAERS Safety Report 7305765-7 (Version None)
Quarter: 2011Q1

REPORT INFORMATION
  Report Type: 
  Country: None (occurrence: None)
  Receive Date: 20110222
  Receipt Date: 20110215
  Transmission Date: 20110831
  Serious: Yes (Life-Threatening)
  Sender: FDA-Public Use
  Company Number: B0700682A

PATIENT
  Age: 88 Year
  Sex: Female

DRUGS (10)
  1. ZOPHREN [Suspect]
     Dosage: 8MG SINGLE DOSE
     Route: 042
     Dates: start: 20110201, end: 20110201
  2. TRACRIUM [Concomitant]
     Route: 042
     Dates: start: 20110201, end: 20110201
  3. SUFENTA PRESERVATIVE FREE [Concomitant]
     Route: 042
     Dates: start: 20110201, end: 20110201
  4. HEMIGOXINE [Concomitant]
     Indication: ATRIAL FIBRILLATION
     Route: 065
  5. ISOPTIN SR [Concomitant]
     Indication: ATRIAL FIBRILLATION
     Route: 065
  6. ACUPAN [Concomitant]
     Dosage: 1AMP SINGLE DOSE
     Route: 042
     Dates: start: 20110201, end: 20110201
  7. DIPRIVAN [Concomitant]
     Route: 042
     Dates: start: 20110201, end: 20110201
  8. EPHEDRINE [Concomitant]
     Indication: HYPOTENSION
     Route: 042
     Dates: start: 20110201, end: 20110201
  9. MORPHINE [Concomitant]
     Dosage: 5MG SINGLE DOSE
     Route: 042
     Dates: start: 20110201, end: 20110201
  10. PERFALGAN [Concomitant]
     Dosage: 1AMP SINGLE DOSE
     Route: 042
     Dates: start: 20110201, end: 20110201

REACTIONS (1)
  - CARDIAC ARREST [None]
